FAERS Safety Report 24822205 (Version 1)
Quarter: 2025Q1

REPORT INFORMATION
  Report Type: Spontaneous
  Country: KR (occurrence: KR)
  Receive Date: 20250108
  Receipt Date: 20250108
  Transmission Date: 20250408
  Serious: Yes (Other)
  Sender: EISAI
  Company Number: KR-Eisai-EC-2025-181877

PATIENT
  Age: 74 Year
  Sex: Male

DRUGS (1)
  1. LENVATINIB [Suspect]
     Active Substance: LENVATINIB
     Indication: Hepatocellular carcinoma
     Route: 048
     Dates: start: 202308

REACTIONS (7)
  - Adrenal insufficiency [Unknown]
  - Hypertension [Unknown]
  - Proteinuria [Unknown]
  - Diarrhoea [Unknown]
  - Facial spasm [Unknown]
  - Rash [Unknown]
  - Pruritus [Unknown]
